FAERS Safety Report 6269612-7 (Version None)
Quarter: 2009Q3

REPORT INFORMATION
  Report Type: 
  Country: None (occurrence: None)
  Receive Date: 20090714
  Receipt Date: 20090702
  Transmission Date: 20100115
  Serious: Yes (Other)
  Sender: FDA-Public Use
  Company Number: 315082

PATIENT
  Sex: Male

DRUGS (1)
  1. PRECEDEX [Suspect]
     Indication: SEDATION
     Dosage: INTRAVENOUS
     Route: 042
     Dates: start: 20090601, end: 20090601

REACTIONS (2)
  - CONVULSION [None]
  - VISUAL IMPAIRMENT [None]
